FAERS Safety Report 12597290 (Version 1)
Quarter: 2016Q3

REPORT INFORMATION
  Report Type: Spontaneous
  Country: US (occurrence: None)
  Receive Date: 20160726
  Receipt Date: 20160726
  Transmission Date: 20161109
  Serious: No
  Sender: FDA-Public Use
  Company Number: None

PATIENT
  Age: 30 Year
  Sex: Female
  Weight: 52.16 kg

DRUGS (4)
  1. IBUPROFEN. [Concomitant]
     Active Substance: IBUPROFEN
  2. CLARITIN [Concomitant]
     Active Substance: LORATADINE
  3. ZOLOFT [Suspect]
     Active Substance: SERTRALINE HYDROCHLORIDE
     Indication: ANXIETY
     Dosage: 1 TABLET(S)  IN THE MORNING TAKEN BY MOUTH
     Route: 048
     Dates: start: 20140101
  4. PRAZOSIN [Concomitant]
     Active Substance: PRAZOSIN

REACTIONS (3)
  - Throat irritation [None]
  - Dysgeusia [None]
  - Foreign body [None]

NARRATIVE: CASE EVENT DATE: 20160725
